FAERS Safety Report 12120296 (Version 2)
Quarter: 2016Q1

REPORT INFORMATION
  Report Type: Spontaneous
  Country: US (occurrence: US)
  Receive Date: 20160226
  Receipt Date: 20160317
  Transmission Date: 20160526
  Serious: No
  Sender: FDA-Public Use
  Company Number: US-BAYER-2016-038233

PATIENT
  Age: 81 Year
  Sex: Female
  Weight: 79.37 kg

DRUGS (1)
  1. ALEVE [Suspect]
     Active Substance: NAPROXEN SODIUM
     Indication: BACK PAIN
     Dosage: 2 DF, UNK
     Route: 048

REACTIONS (2)
  - Therapeutic response unexpected [None]
  - Product use issue [None]
